FAERS Safety Report 26048117 (Version 1)
Quarter: 2025Q4

REPORT INFORMATION
  Report Type: Report from Study
  Country: US (occurrence: US)
  Receive Date: 20251114
  Receipt Date: 20251114
  Transmission Date: 20260118
  Serious: Yes (Other)
  Sender: TAIHO ONCOLOGY INC
  Company Number: US-TAIHOP-2025-012234

PATIENT
  Sex: Male
  Weight: 71.3 kg

DRUGS (2)
  1. LONSURF [Suspect]
     Active Substance: TIPIRACIL HYDROCHLORIDE\TRIFLURIDINE
     Indication: Colorectal cancer
     Dosage: CYCLE UNKNOWN, LAST DOSE ON 29/OCT/2025
     Route: 048
     Dates: end: 20251029
  2. BRAFTOVI [Suspect]
     Active Substance: ENCORAFENIB
     Indication: Product used for unknown indication
     Route: 050

REACTIONS (8)
  - Neuropathy peripheral [Unknown]
  - Body temperature increased [Unknown]
  - Headache [Unknown]
  - Neck pain [Unknown]
  - Facial pain [Unknown]
  - Eye pain [Unknown]
  - Flushing [Unknown]
  - Inappropriate schedule of product administration [Unknown]
